FAERS Safety Report 5516137-X (Version None)
Quarter: 2007Q4

REPORT INFORMATION
  Report Type: 
  Country: None (occurrence: None)
  Receive Date: 20071114
  Receipt Date: 20061222
  Transmission Date: 20080405
  Serious: No
  Sender: FDA-Public Use
  Company Number: A0632411A

PATIENT
  Age: 66 Year
  Sex: Female

DRUGS (1)
  1. COMMIT [Suspect]
     Dates: start: 20061217, end: 20061220

REACTIONS (5)
  - MALAISE [None]
  - MOUTH ULCERATION [None]
  - NERVOUSNESS [None]
  - ORAL MUCOSAL BLISTERING [None]
  - PALPITATIONS [None]
